FAERS Safety Report 25319893 (Version 1)
Quarter: 2025Q2

REPORT INFORMATION
  Report Type: Spontaneous
  Country: CN (occurrence: CN)
  Receive Date: 20250515
  Receipt Date: 20250515
  Transmission Date: 20250716
  Serious: Yes (Hospitalization, Other)
  Sender: PFIZER
  Company Number: CN-PFIZER INC-PV202500057145

PATIENT
  Age: 71 Year
  Sex: Female

DRUGS (4)
  1. EXEMESTANE [Suspect]
     Active Substance: EXEMESTANE
     Indication: Breast cancer stage I
     Dates: start: 201911
  2. EXEMESTANE [Suspect]
     Active Substance: EXEMESTANE
     Dates: start: 202011
  3. PALBOCICLIB [Suspect]
     Active Substance: PALBOCICLIB
     Indication: Breast cancer stage I
     Dates: start: 202011
  4. PALBOCICLIB [Suspect]
     Active Substance: PALBOCICLIB

REACTIONS (5)
  - Second primary malignancy [Recovered/Resolved]
  - Chronic myeloid leukaemia [Recovered/Resolved]
  - Neutropenia [Unknown]
  - Off label use [Unknown]
  - Product use issue [Unknown]

NARRATIVE: CASE EVENT DATE: 20201101
